FAERS Safety Report 7304935-1 (Version None)
Quarter: 2011Q1

REPORT INFORMATION
  Report Type: 
  Country: None (occurrence: None)
  Receive Date: 20110222
  Receipt Date: 20101028
  Transmission Date: 20110831
  Serious: No
  Sender: FDA-Public Use
  Company Number: US-BAYER-201023235BCC

PATIENT
  Sex: Female
  Weight: 45.909 kg

DRUGS (1)
  1. ALEVE [Suspect]
     Indication: HEADACHE
     Dosage: UNK
     Route: 048
     Dates: start: 20101026

REACTIONS (3)
  - HYPERSENSITIVITY [None]
  - DYSPHAGIA [None]
  - OROPHARYNGEAL PAIN [None]
